FAERS Safety Report 5118573-2 (Version None)
Quarter: 2006Q4

REPORT INFORMATION
  Report Type: 
  Country: None (occurrence: None)
  Receive Date: 20061002
  Receipt Date: 20060927
  Transmission Date: 20070319
  Serious: Yes (Life-Threatening)
  Sender: FDA-Public Use
  Company Number: 2006AP04523

PATIENT
  Age: 71 Year
  Sex: Female

DRUGS (3)
  1. IRESSA [Suspect]
     Indication: NON-SMALL CELL LUNG CANCER
     Route: 048
     Dates: start: 20060908, end: 20060919
  2. CODEINE PHOSPHATE [Concomitant]
     Route: 048
     Dates: start: 20060201, end: 20060919
  3. OMEPRAZOLE [Concomitant]
     Route: 048
     Dates: start: 20060201, end: 20060919

REACTIONS (1)
  - LUNG DISORDER [None]
